FAERS Safety Report 17335241 (Version 1)
Quarter: 2020Q1

REPORT INFORMATION
  Report Type: Spontaneous
  Country: IE (occurrence: IE)
  Receive Date: 20200128
  Receipt Date: 20200128
  Transmission Date: 20200409
  Serious: Yes (Other)
  Sender: FDA-Public Use
  Company Number: IE-ACCORD-170926

PATIENT
  Age: 37 Year
  Sex: Female

DRUGS (3)
  1. ALLOPURINOL. [Suspect]
     Active Substance: ALLOPURINOL
     Indication: PRODUCT USED FOR UNKNOWN INDICATION
     Route: 065
  2. COTRIMOXAZOLE [Suspect]
     Active Substance: SULFAMETHOXAZOLE\TRIMETHOPRIM
     Indication: PRODUCT USED FOR UNKNOWN INDICATION
     Route: 065
  3. CLADRIBINE. [Suspect]
     Active Substance: CLADRIBINE
     Indication: HAIRY CELL LEUKAEMIA
     Dosage: SINGLE FIVE-DAY COURSE OF CLADRIBINE AT A DOSE OF 0.1 MG/KG/DAY BY CONTINUOUS INTRAVENOUS INFUSION
     Route: 042

REACTIONS (2)
  - Rash erythematous [Recovered/Resolved]
  - Febrile neutropenia [Recovered/Resolved]
